FAERS Safety Report 7988905-6 (Version None)
Quarter: 2011Q4

REPORT INFORMATION
  Report Type: 
  Country: None (occurrence: None)
  Receive Date: 20111215
  Receipt Date: 20111215
  Transmission Date: 20120403
  Serious: Yes (Hospitalization)
  Sender: FDA-Public Use
  Company Number: None

PATIENT
  Sex: Male
  Weight: 79.3795 kg

DRUGS (2)
  1. LIPITOR [Suspect]
     Indication: BLOOD CHOLESTEROL
     Dosage: 80 MG 1 X PER DAY A.M ORAL
     Route: 048
     Dates: start: 20110914
  2. LIPITOR [Suspect]
     Indication: BLOOD CHOLESTEROL
     Dosage: 80 MG 1 X PER DAY A.M ORAL
     Route: 048
     Dates: start: 20110304

REACTIONS (6)
  - CHILLS [None]
  - BLOOD CREATINE PHOSPHOKINASE INCREASED [None]
  - STAPHYLOCOCCAL INFECTION [None]
  - PAIN [None]
  - MUSCULAR WEAKNESS [None]
  - TREMOR [None]
